FAERS Safety Report 4407796-3 (Version None)
Quarter: 2004Q3

REPORT INFORMATION
  Report Type: 
  Country: None (occurrence: None)
  Receive Date: 20040721
  Receipt Date: 20040709
  Transmission Date: 20050211
  Serious: Yes (Other)
  Sender: FDA-Public Use
  Company Number: 207759

PATIENT
  Age: 9 Year
  Sex: Female
  Weight: 28 kg

DRUGS (3)
  1. NUTROPIN [Suspect]
     Indication: GROWTH HORMONE DEFICIENCY
     Dosage: 0.8 MG, 6/WEEK, SUBCUTANEOUS
     Route: 058
     Dates: start: 20030523
  2. DILANTIN [Concomitant]
  3. SYNTHROID (LEVOTHYROXINE SODIUM0 [Concomitant]

REACTIONS (2)
  - DISEASE RECURRENCE [None]
  - PINEALOBLASTOMA [None]
